FAERS Safety Report 16514278 (Version 5)
Quarter: 2021Q2

REPORT INFORMATION
  Report Type: Report from Study
  Country: JP (occurrence: JP)
  Receive Date: 20190702
  Receipt Date: 20210520
  Transmission Date: 20210716
  Serious: Yes (Other)
  Sender: FDA-Public Use
  Company Number: JP-BEH-2018095183

PATIENT
  Age: 40 Year
  Sex: Female
  Weight: 66 kg

DRUGS (20)
  1. IDELVION [Suspect]
     Active Substance: COAGULATION FACTOR IX RECOMBINANT HUMAN
     Indication: FACTOR IX DEFICIENCY
     Dosage: 2000 INTERNATIONAL UNIT, TOT
     Route: 042
     Dates: start: 20180920, end: 20180920
  2. MORPHINE HYDROCHLORIDE TRIHYDRATE [Concomitant]
     Active Substance: MORPHINE HYDROCHLORIDE
     Indication: ANAESTHESIA
     Dosage: UNK
     Route: 065
     Dates: start: 20180920, end: 20180920
  3. IDELVION [Suspect]
     Active Substance: COAGULATION FACTOR IX RECOMBINANT HUMAN
     Indication: FACTOR IX DEFICIENCY
     Dosage: 1000 INTERNATIONAL UNIT, QD
     Route: 042
     Dates: start: 20180808, end: 20180808
  4. IDELVION [Suspect]
     Active Substance: COAGULATION FACTOR IX RECOMBINANT HUMAN
     Indication: PRODUCT USED FOR UNKNOWN INDICATION
     Dosage: 1000 INTERNATIONAL UNIT, QD
     Route: 042
  5. REMIFENTANIL HYDROCHLORIDE. [Concomitant]
     Active Substance: REMIFENTANIL HYDROCHLORIDE
     Indication: ANAESTHESIA
     Dosage: UNK
     Route: 065
     Dates: start: 20180920, end: 20180920
  6. PANTOL [PANTHENOL] [Concomitant]
     Indication: ILEUS PARALYTIC
     Dosage: UNK
     Route: 065
     Dates: start: 20180920, end: 20180921
  7. IDELVION [Suspect]
     Active Substance: COAGULATION FACTOR IX RECOMBINANT HUMAN
     Indication: FACTOR IX DEFICIENCY
     Dosage: 2000 INTERNATIONAL UNIT, TOT
     Route: 042
     Dates: start: 20180920, end: 20180920
  8. IDELVION [Suspect]
     Active Substance: COAGULATION FACTOR IX RECOMBINANT HUMAN
     Indication: PRODUCT USED FOR UNKNOWN INDICATION
     Dosage: 1000 INTERNATIONAL UNIT, QD
     Route: 042
  9. IDELVION [Suspect]
     Active Substance: COAGULATION FACTOR IX RECOMBINANT HUMAN
     Indication: PREOPERATIVE CARE
     Dosage: 2000 INTERNATIONAL UNIT, QD
     Route: 042
  10. IDELVION [Suspect]
     Active Substance: COAGULATION FACTOR IX RECOMBINANT HUMAN
     Indication: PREOPERATIVE CARE
     Dosage: 2000 INTERNATIONAL UNIT, QD
     Route: 042
  11. FESIN [GUAIFENESIN] [Concomitant]
     Active Substance: GUAIFENESIN
     Indication: ANAEMIA PROPHYLAXIS
     Dosage: UNK
     Route: 042
     Dates: start: 20180921, end: 20180924
  12. IDELVION [Suspect]
     Active Substance: COAGULATION FACTOR IX RECOMBINANT HUMAN
     Indication: PROCEDURAL HAEMORRHAGE
     Dosage: 2000 INTERNATIONAL UNIT, TOT
     Route: 042
     Dates: start: 20180921, end: 20180922
  13. IDELVION [Suspect]
     Active Substance: COAGULATION FACTOR IX RECOMBINANT HUMAN
     Indication: POST PROCEDURAL HAEMORRHAGE
     Dosage: 1000 INTERNATIONAL UNIT, TOT
     Route: 042
     Dates: start: 20180920, end: 20180920
  14. IDELVION [Suspect]
     Active Substance: COAGULATION FACTOR IX RECOMBINANT HUMAN
     Indication: PROCEDURAL HAEMORRHAGE
     Dosage: 2000 INTERNATIONAL UNIT, TOT
     Route: 042
     Dates: start: 20180921, end: 20180922
  15. FENTANYL CITRATE. [Concomitant]
     Active Substance: FENTANYL CITRATE
     Indication: ANAESTHESIA
     Dosage: UNK
     Route: 065
     Dates: start: 20180920, end: 20180920
  16. IDELVION [Suspect]
     Active Substance: COAGULATION FACTOR IX RECOMBINANT HUMAN
     Indication: FACTOR IX DEFICIENCY
     Dosage: 1000 INTERNATIONAL UNIT, QD
     Route: 042
     Dates: start: 20180808, end: 20180808
  17. ATONIN?O [Concomitant]
     Active Substance: OXYTOCIN
     Indication: UTERINE CONTRACTIONS DURING PREGNANCY
     Dosage: UNK
     Route: 065
     Dates: start: 20180920, end: 20180920
  18. CEFAZOLIN SODIUM. [Concomitant]
     Active Substance: CEFAZOLIN SODIUM
     Indication: INFECTION PROPHYLAXIS
     Dosage: UNK
     Route: 065
     Dates: start: 20180920, end: 20180923
  19. SOSEGON [PENTAZOCINE] [Concomitant]
     Active Substance: PENTAZOCINE
     Indication: ANALGESIC THERAPY
     Dosage: UNK
     Route: 065
     Dates: start: 20180920, end: 20180920
  20. IDELVION [Suspect]
     Active Substance: COAGULATION FACTOR IX RECOMBINANT HUMAN
     Indication: POST PROCEDURAL HAEMORRHAGE
     Dosage: 1000 INTERNATIONAL UNIT, TOT
     Route: 042
     Dates: start: 20180920, end: 20180920

REACTIONS (4)
  - Obstructed labour [Recovered/Resolved]
  - Procedural pain [Recovered/Resolved]
  - Ileus paralytic [Recovered/Resolved]
  - Uterine hypotonus [Recovered/Resolved]

NARRATIVE: CASE EVENT DATE: 20180920
